FAERS Safety Report 6491240-9 (Version None)
Quarter: 2009Q4

REPORT INFORMATION
  Report Type: 
  Country: None (occurrence: None)
  Receive Date: 20091207
  Receipt Date: 20091120
  Transmission Date: 20100525
  Serious: Yes (Other)
  Sender: FDA-Public Use
  Company Number: 2009AL007420

PATIENT
  Sex: 0

DRUGS (2)
  1. TRAMADOL HYDROCHLORIDE [Suspect]
     Indication: ANAESTHESIA
     Dosage: 400 MG;QD;TRPL
     Route: 064
  2. TRAMADOL HYDROCHLORIDE [Suspect]
     Indication: ANALGESIC THERAPY
     Dosage: 400 MG;QD;TRPL
     Route: 064

REACTIONS (7)
  - CAESAREAN SECTION [None]
  - DRUG LEVEL ABOVE THERAPEUTIC [None]
  - DRUG WITHDRAWAL SYNDROME NEONATAL [None]
  - FOETAL MACROSOMIA [None]
  - MATERNAL DRUGS AFFECTING FOETUS [None]
  - MYOCLONUS [None]
  - PREMATURE BABY [None]
